FAERS Safety Report 24206588 (Version 1)
Quarter: 2024Q3

REPORT INFORMATION
  Report Type: Spontaneous
  Country: US (occurrence: US)
  Receive Date: 20240813
  Receipt Date: 20240813
  Transmission Date: 20241017
  Serious: No
  Sender: JOHNSON AND JOHNSON
  Company Number: US-JNJFOC-20240825122

PATIENT

DRUGS (1)
  1. BALVERSA [Suspect]
     Active Substance: ERDAFITINIB
     Indication: Product used for unknown indication
     Dosage: PATIENT HAS BEEN ON THE MEDICATION FOR 2 YEARS
     Route: 065

REACTIONS (2)
  - Haemorrhoids [Unknown]
  - Noninfective gingivitis [Unknown]
